FAERS Safety Report 14193855 (Version 3)
Quarter: 2017Q4

REPORT INFORMATION
  Report Type: Spontaneous
  Country: CN (occurrence: CN)
  Receive Date: 20171116
  Receipt Date: 20171205
  Transmission Date: 20180321
  Serious: Yes (Hospitalization, Other)
  Sender: FDA-Public Use
  Company Number: CN-ASTRAZENECA-2017SF09041

PATIENT
  Age: 66 Year
  Sex: Female

DRUGS (4)
  1. TAGRISSO [Suspect]
     Active Substance: OSIMERTINIB
     Route: 048
  2. PANTOPRAZOLE SODIUM. [Concomitant]
     Active Substance: PANTOPRAZOLE SODIUM
  3. IRESSA [Suspect]
     Active Substance: GEFITINIB
     Indication: NON-SMALL CELL LUNG CANCER
     Route: 048
  4. TRIMEBUTINE [Concomitant]
     Active Substance: TRIMEBUTINE

REACTIONS (7)
  - White blood cell count increased [Unknown]
  - White blood cell count decreased [Unknown]
  - Metastasis [Unknown]
  - Platelet count decreased [Recovered/Resolved]
  - Cholecystitis [Unknown]
  - Drug resistance [Unknown]
  - Red blood cell count decreased [Unknown]
